FAERS Safety Report 23955245 (Version 2)
Quarter: 2024Q4

REPORT INFORMATION
  Report Type: Spontaneous
  Country: MX (occurrence: MX)
  Receive Date: 20240610
  Receipt Date: 20241018
  Transmission Date: 20250115
  Serious: Yes (Other)
  Sender: ROCHE
  Company Number: MX-ROCHE-3561372

PATIENT
  Age: 74 Year
  Sex: Female
  Weight: 70.0 kg

DRUGS (2)
  1. VABYSMO [Suspect]
     Active Substance: FARICIMAB-SVOA
     Indication: Neovascular age-related macular degeneration
     Dosage: 6 MG IN 0.05 ML
     Route: 050
     Dates: start: 20231121, end: 20240119
  2. PREDNISONE [Concomitant]
     Active Substance: PREDNISONE
     Route: 048

REACTIONS (4)
  - Eye pain [Unknown]
  - Visual impairment [Unknown]
  - Eye inflammation [Not Recovered/Not Resolved]
  - Vitreous disorder [Not Recovered/Not Resolved]

NARRATIVE: CASE EVENT DATE: 20240313
